FAERS Safety Report 8909651 (Version 3)
Quarter: 2012Q4

REPORT INFORMATION
  Report Type: 
  Country: AR (occurrence: AR)
  Receive Date: 20121115
  Receipt Date: 20121213
  Transmission Date: 20130627
  Serious: Yes (Other)
  Sender: FDA-Public Use
  Company Number: AR-ROCHE-1154432

PATIENT
  Sex: Female

DRUGS (3)
  1. LUCENTIS [Suspect]
     Indication: MACULOPATHY
     Route: 050
     Dates: start: 201101
  2. LUCENTIS [Suspect]
     Route: 050
     Dates: start: 201102
  3. LUCENTIS [Suspect]
     Route: 050
     Dates: start: 201105

REACTIONS (6)
  - Eye haemorrhage [Not Recovered/Not Resolved]
  - Metamorphopsia [Recovering/Resolving]
  - Stress [Unknown]
  - Presbyopia [Unknown]
  - Visual acuity reduced [Unknown]
  - Visual impairment [Unknown]
